FAERS Safety Report 9108868 (Version 2)
Quarter: 2013Q1

REPORT INFORMATION
  Report Type: Report from Study
  Country: US (occurrence: US)
  Receive Date: 20130222
  Receipt Date: 20130325
  Transmission Date: 20140127
  Serious: Yes (Death, Hospitalization)
  Sender: FDA-Public Use
  Company Number: US-VERTEX PHARMACEUTICALS INC.-2013-002512

PATIENT
  Sex: Female

DRUGS (11)
  1. VX-950 (TELAPREVIR) [Suspect]
     Indication: HEPATITIS C
     Dosage: 750 MG, TID
     Route: 048
     Dates: start: 20130115, end: 20130129
  2. PEGASYS [Suspect]
     Indication: HEPATITIS C
     Dosage: 180 ?G, QW
     Route: 058
     Dates: start: 20130115, end: 20130129
  3. RIBASPHERE [Suspect]
     Indication: HEPATITIS C
     Dosage: 600 MG, BID
     Route: 048
     Dates: start: 20130115, end: 20130129
  4. SODIUM BICARBONATE [Concomitant]
  5. INSULIN [Concomitant]
  6. LEVOTHYROXINE [Concomitant]
  7. AMLODIPINE [Concomitant]
  8. DAPTOMYCIN [Concomitant]
  9. LORAZEPAM [Concomitant]
  10. ONDANSETRON [Concomitant]
  11. ADVAIR [Concomitant]

REACTIONS (2)
  - Sepsis [Fatal]
  - Cellulitis [Not Recovered/Not Resolved]
